FAERS Safety Report 25221918 (Version 1)
Quarter: 2025Q2

REPORT INFORMATION
  Report Type: Spontaneous
  Country: FR (occurrence: FR)
  Receive Date: 20250421
  Receipt Date: 20250421
  Transmission Date: 20250717
  Serious: Yes (Other)
  Sender: PFIZER
  Company Number: None

PATIENT
  Age: 70 Year
  Sex: Female
  Weight: 58 kg

DRUGS (20)
  1. RIFABUTIN [Interacting]
     Active Substance: RIFABUTIN
     Indication: Pulmonary tuberculosis
     Route: 048
     Dates: start: 20250116, end: 20250315
  2. NORVIR [Interacting]
     Active Substance: RITONAVIR
     Indication: HIV infection
     Dosage: 100 MG, 1X/DAY
     Route: 048
     Dates: start: 2005
  3. ALLOPURINOL [Concomitant]
     Active Substance: ALLOPURINOL
  4. AMLODIPINE [Concomitant]
     Active Substance: AMLODIPINE BESYLATE
  5. BISOPROLOL FUMARATE [Concomitant]
     Active Substance: BISOPROLOL FUMARATE
  6. COLCHICINE [Concomitant]
     Active Substance: COLCHICINE
  7. DARUNAVIR [Concomitant]
     Active Substance: DARUNAVIR
  8. DOLUTEGRAVIR [Concomitant]
     Active Substance: DOLUTEGRAVIR
  9. ESOMEPRAZOLE [Concomitant]
     Active Substance: ESOMEPRAZOLE
  10. FOLIC ACID [Concomitant]
     Active Substance: FOLIC ACID
  11. FERROUS FUMARATE [Concomitant]
     Active Substance: FERROUS FUMARATE
  12. ISONIAZID [Concomitant]
     Active Substance: ISONIAZID
  13. LAMIVUDINE [Concomitant]
     Active Substance: LAMIVUDINE
  14. ACETAMINOPHEN [Concomitant]
     Active Substance: ACETAMINOPHEN
  15. PHOSPHORUS [Concomitant]
     Active Substance: PHOSPHORUS
  16. POTASSIUM CHLORIDE [Concomitant]
     Active Substance: POTASSIUM CHLORIDE
  17. PYRAZINAMIDE [Concomitant]
     Active Substance: PYRAZINAMIDE
  18. PYRIDOXINE [Concomitant]
     Active Substance: PYRIDOXINE
  19. WARFARIN [Concomitant]
     Active Substance: WARFARIN
  20. TINZAPARIN SODIUM [Concomitant]
     Active Substance: TINZAPARIN SODIUM

REACTIONS (3)
  - Iridocyclitis [Recovering/Resolving]
  - Drug interaction [Recovered/Resolved]
  - Off label use [Unknown]

NARRATIVE: CASE EVENT DATE: 20250116
